FAERS Safety Report 13412667 (Version 1)
Quarter: 2017Q2

REPORT INFORMATION
  Report Type: Spontaneous
  Country: US (occurrence: US)
  Receive Date: 20170406
  Receipt Date: 20170406
  Transmission Date: 20170830
  Serious: Yes (Hospitalization)
  Sender: FDA-Public Use
  Company Number: None

PATIENT
  Age: 78 Year
  Sex: Female
  Weight: 74.25 kg

DRUGS (4)
  1. LISINIPROL [Concomitant]
  2. ASPIRIN. [Concomitant]
     Active Substance: ASPIRIN
  3. KYPROLIS [Suspect]
     Active Substance: CARFILZOMIB
  4. CARDIVOLOL [Concomitant]

REACTIONS (2)
  - Cardiac failure [None]
  - Dyspnoea [None]
